FAERS Safety Report 5649315-X (Version None)
Quarter: 2008Q1

REPORT INFORMATION
  Report Type: 
  Country: None (occurrence: None)
  Receive Date: 20080304
  Receipt Date: 20071219
  Transmission Date: 20080703
  Serious: No
  Sender: FDA-Public Use
  Company Number: US-BAYER-200717186NA

PATIENT
  Age: 38 Year
  Sex: Female
  Weight: 81 kg

DRUGS (3)
  1. ULTRAVIST 150 [Suspect]
     Indication: COMPUTERISED TOMOGRAM
     Dosage: UNIT DOSE: 100 ML
     Route: 042
     Dates: start: 20071219, end: 20071219
  2. GLICOMET [Concomitant]
  3. READI-CAT [Concomitant]
     Indication: COMPUTERISED TOMOGRAM
     Route: 048
     Dates: start: 20071219, end: 20071219

REACTIONS (3)
  - NASAL CONGESTION [None]
  - SNEEZING [None]
  - THROAT IRRITATION [None]
